FAERS Safety Report 9396748 (Version 1)
Quarter: 2013Q3

REPORT INFORMATION
  Report Type: Spontaneous
  Country: US (occurrence: US)
  Receive Date: 20130712
  Receipt Date: 20130712
  Transmission Date: 20140515
  Serious: Yes (Other)
  Sender: FDA-Public Use
  Company Number: US-JNJCP-30000169916

PATIENT
  Sex: Female
  Weight: 91 kg

DRUGS (5)
  1. NEUTROGENA HEALTHY SKIN FACE LOTION WITH SPF 15 [Suspect]
     Indication: DRY SKIN PROPHYLAXIS
     Dosage: ONE SQUIRT, ONCE DAILY
     Route: 061
     Dates: end: 20130630
  2. OIL OF OLAY [Concomitant]
     Indication: DRY SKIN PROPHYLAXIS
     Dosage: A LITTLE BIT SINCE ONE WEEK
  3. UNSPECIFIED MEDICATIONS [Concomitant]
     Indication: PRODUCT USED FOR UNKNOWN INDICATION
  4. VITAMINS [Concomitant]
     Indication: VITAMIN SUPPLEMENTATION
  5. NEUTROGENA HEALTHY SKIN FACE LOTION WITH SPF 15 [Suspect]
     Indication: DRY SKIN PROPHYLAXIS
     Dosage: ONE SQUIRT, ONCE DAILY
     Route: 061
     Dates: end: 20130630

REACTIONS (2)
  - Cellulitis orbital [Recovered/Resolved]
  - Hypersensitivity [Recovered/Resolved]
